FAERS Safety Report 15773193 (Version 1)
Quarter: 2018Q4

REPORT INFORMATION
  Report Type: Spontaneous
  Country: US (occurrence: US)
  Receive Date: 20181228
  Receipt Date: 20181228
  Transmission Date: 20190205
  Serious: No
  Sender: FDA-Public Use
  Company Number: US-SA-2018SA390321

PATIENT
  Sex: Male

DRUGS (1)
  1. GOLD BOND ULTIMATE MENS ESSENTIALS BODY POWDER REFRESH 360 [Suspect]
     Active Substance: ZINC OXIDE

REACTIONS (1)
  - Burning sensation [Unknown]
